FAERS Safety Report 5684873-0 (Version None)
Quarter: 2008Q1

REPORT INFORMATION
  Report Type: 
  Country: None (occurrence: None)
  Receive Date: 20080328
  Receipt Date: 19930818
  Transmission Date: 20080703
  Serious: Yes (Death)
  Sender: FDA-Public Use
  Company Number: US-ROCHE-25752

PATIENT
  Age: 41 Year
  Sex: Male
  Weight: 52.3 kg

DRUGS (10)
  1. CYTOVENE IV [Suspect]
     Route: 042
     Dates: start: 19930719, end: 19930723
  2. ADRIAMYCIN PFS [Concomitant]
     Route: 042
     Dates: start: 19920212, end: 19930723
  3. BIAXIN [Concomitant]
     Route: 048
     Dates: start: 19930525, end: 19930723
  4. BLEOMYCIN SULFATE [Concomitant]
     Route: 042
     Dates: start: 19920212, end: 19930723
  5. CIPRO [Concomitant]
     Route: 048
     Dates: start: 19930525, end: 19930723
  6. HYDROCORTISONE [Concomitant]
     Route: 048
     Dates: start: 19930706, end: 19930723
  7. LAMPRENE [Concomitant]
     Route: 048
     Dates: start: 19930525, end: 19930723
  8. MYAMBUTOL [Concomitant]
     Route: 048
     Dates: start: 19930525, end: 19930723
  9. RIFAMPIN [Concomitant]
     Route: 048
     Dates: start: 19930525, end: 19930723
  10. VELBAN [Concomitant]
     Route: 042
     Dates: start: 19921202, end: 19930723

REACTIONS (1)
  - KAPOSI'S SARCOMA [None]
